FAERS Safety Report 23722004 (Version 1)
Quarter: 2024Q2

REPORT INFORMATION
  Report Type: Spontaneous
  Country: US (occurrence: None)
  Receive Date: 20240408
  Receipt Date: 20240408
  Transmission Date: 20240716
  Serious: No
  Sender: FDA-Public Use
  Company Number: None

PATIENT
  Age: 69 Year
  Sex: Female

DRUGS (1)
  1. CAPECITABINE [Suspect]
     Active Substance: CAPECITABINE
     Indication: Breast cancer female
     Dosage: OTHER FREQUENCY : CYCLIC;?

REACTIONS (5)
  - Fatigue [None]
  - Therapy cessation [None]
  - Dysgeusia [None]
  - Peripheral sensory neuropathy [None]
  - Paraesthesia [None]
